FAERS Safety Report 5643999-8 (Version None)
Quarter: 2008Q1

REPORT INFORMATION
  Report Type: 
  Country: None (occurrence: None)
  Receive Date: 20080131
  Receipt Date: 20071116
  Transmission Date: 20080703
  Serious: Yes (Hospitalization)
  Sender: FDA-Public Use
  Company Number: 163-21880-07111097

PATIENT
  Age: 64 Year
  Sex: Female

DRUGS (10)
  1. REVLIMID [Suspect]
     Indication: MULTIPLE MYELOMA
     Dosage: 25 MG, DAILY 21D/28D, ORAL
     Route: 048
     Dates: start: 20070917, end: 20071001
  2. REVLIMID [Suspect]
     Indication: MULTIPLE MYELOMA
     Dosage: 25 MG, DAILY 21D/28D, ORAL
     Route: 048
     Dates: start: 20071116
  3. DECADRON [Concomitant]
  4. AMITRIPTYLINE (MITRIPTYLINE) [Concomitant]
  5. RANITIDINE [Concomitant]
  6. VICODIN [Concomitant]
  7. ZOCOR [Concomitant]
  8. LEXAPRO [Concomitant]
  9. PRILOSEC [Concomitant]
  10. ASPIRIN [Concomitant]

REACTIONS (10)
  - CHEST PAIN [None]
  - DEHYDRATION [None]
  - HERPES ZOSTER [None]
  - MUSCULOSKELETAL CHEST PAIN [None]
  - NAUSEA [None]
  - NON-CARDIAC CHEST PAIN [None]
  - ORAL INTAKE REDUCED [None]
  - RASH VESICULAR [None]
  - VOMITING [None]
  - WEIGHT DECREASED [None]
